FAERS Safety Report 4977555-1 (Version None)
Quarter: 2006Q2

REPORT INFORMATION
  Report Type: 
  Country: None (occurrence: None)
  Receive Date: 20060420
  Receipt Date: 20060412
  Transmission Date: 20061013
  Serious: Yes (Other)
  Sender: FDA-Public Use
  Company Number: US-JNJFOC-20060403308

PATIENT
  Sex: Female
  Weight: 65.77 kg

DRUGS (10)
  1. DURAGESIC-100 [Suspect]
     Route: 062
  2. DILAUDID [Concomitant]
     Indication: PAIN
  3. DEMEROL [Concomitant]
     Indication: PAIN
  4. EFFEXOR [Concomitant]
  5. CLONAZEPAM [Concomitant]
  6. TRAZODONE HCL [Concomitant]
  7. PREMARIN [Concomitant]
  8. LEVOTHYROXINE SODIUM [Concomitant]
  9. ACIPHEX [Concomitant]
  10. MORPHINE [Concomitant]

REACTIONS (4)
  - ANOREXIA [None]
  - DRUG WITHDRAWAL CONVULSIONS [None]
  - INFLUENZA LIKE ILLNESS [None]
  - PANIC ATTACK [None]
